FAERS Safety Report 9712373 (Version 1)
Quarter: 2013Q4

REPORT INFORMATION
  Report Type: Spontaneous
  Country: US (occurrence: US)
  Receive Date: 20131126
  Receipt Date: 20131126
  Transmission Date: 20140711
  Serious: No
  Sender: FDA-Public Use
  Company Number: US-BRISTOL-MYERS SQUIBB COMPANY-19176718

PATIENT
  Age: 83 Year
  Sex: Male
  Weight: 95.24 kg

DRUGS (8)
  1. BYDUREON [Suspect]
     Indication: TYPE 2 DIABETES MELLITUS
     Route: 058
  2. ASPIRIN [Concomitant]
     Dosage: 5 OR 6 DOSES
  3. GLIPIZIDE [Concomitant]
     Dosage: TABLETS (TAKES TWO IN THE MORNING AND TWO IN THE EVENING
  4. ACTOS [Concomitant]
  5. WELCHOL [Concomitant]
     Dosage: ONE TABLE IN THE MORNING
  6. LIPITOR [Concomitant]
     Dosage: 40MG TABLET IN THE EVENING
  7. HUMULIN [Concomitant]
  8. HUMULIN R [Concomitant]
     Dosage: HUMULIN R U-100 INSULIN, 18 UNITS IN THE MORNING AND 5 UNITS AT NIGHT

REACTIONS (2)
  - Epistaxis [Recovered/Resolved]
  - Blood pressure increased [Unknown]
